FAERS Safety Report 19786266 (Version 2)
Quarter: 2021Q3

REPORT INFORMATION
  Report Type: Report from Study
  Country: KR (occurrence: KR)
  Receive Date: 20210903
  Receipt Date: 20210910
  Transmission Date: 20211014
  Serious: Yes (Hospitalization)
  Sender: FDA-Public Use
  Company Number: KR-ROCHE-2901318

PATIENT
  Age: 58 Year
  Sex: Female
  Weight: 72.15 kg

DRUGS (15)
  1. TRAMADOL. [Concomitant]
     Active Substance: TRAMADOL
     Route: 048
     Dates: start: 20210519
  2. FAMOTIDINE. [Concomitant]
     Active Substance: FAMOTIDINE
     Route: 048
     Dates: start: 20210702, end: 20210722
  3. SEPTRIN [Concomitant]
     Active Substance: SULFAMETHOXAZOLE\TRIMETHOPRIM
     Dosage: 1 TABLET
     Route: 048
     Dates: start: 20210723
  4. ESOMEPRAZOLE. [Concomitant]
     Active Substance: ESOMEPRAZOLE MAGNESIUM
     Route: 048
     Dates: start: 20210723
  5. POLATUZUMAB VEDOTIN. [Suspect]
     Active Substance: POLATUZUMAB VEDOTIN
     Indication: B-CELL LYMPHOMA
     Dosage: ON 02/JUL/2021, SHE RECEIVED HER MOST RECENT DOSE(135 MG) OF POLATUZUMAB VEDOTIN.
     Route: 042
     Dates: start: 20210429
  6. DOXORUBICIN [Suspect]
     Active Substance: DOXORUBICIN
     Indication: B-CELL LYMPHOMA
     Dosage: ON 02/JUL/2021, SHE RECEIVED HER MOST RECENT DOSE(88.5 MG) OF DOXORUBICIN
     Route: 042
     Dates: start: 20210429
  7. PREDNISOLONE. [Concomitant]
     Active Substance: PREDNISOLONE
     Route: 048
     Dates: start: 20210520
  8. ONDANSETRON [Concomitant]
     Active Substance: ONDANSETRON
     Route: 048
     Dates: start: 20210604
  9. METHYLPREDNISOLONE. [Concomitant]
     Active Substance: METHYLPREDNISOLONE
     Route: 048
     Dates: start: 20210723
  10. MOSUNETUZUMAB. [Suspect]
     Active Substance: MOSUNETUZUMAB
     Indication: B-CELL LYMPHOMA
     Dosage: ON 02/JUL/2021, SHE RECEIVED HER MOST RECENT DOSE(30 MG) OF MOSUNETUZUMAB.
     Route: 042
     Dates: start: 20210429
  11. PETHIDINE [Concomitant]
     Active Substance: MEPERIDINE
     Route: 042
     Dates: start: 20210727, end: 20210729
  12. CYCLOPHOSPHAMIDE. [Suspect]
     Active Substance: CYCLOPHOSPHAMIDE
     Indication: B-CELL LYMPHOMA
     Dosage: ON 02/JUL/2021, SHE RECEIVED HER MOST RECENT DOSE(1327.5MG) OF CYCLOPHOSPHAMIDE.
     Route: 042
     Dates: start: 20210429
  13. PREDNISONE. [Suspect]
     Active Substance: PREDNISONE
     Indication: B-CELL LYMPHOMA
     Dosage: ON 02/JUL/2021, SHE RECEIVED HER MOST RECENT DOSE(100 MG) OF PREDNISONE.
     Route: 065
     Dates: start: 20210429
  14. GRANISETRON [Concomitant]
     Active Substance: GRANISETRON
     Route: 061
     Dates: start: 20210506, end: 20210722
  15. CALCIUM CARBONATE. [Concomitant]
     Active Substance: CALCIUM CARBONATE
     Route: 048
     Dates: start: 20210723

REACTIONS (1)
  - Abdominal pain [Not Recovered/Not Resolved]

NARRATIVE: CASE EVENT DATE: 20210821
